FAERS Safety Report 4543280-4 (Version None)
Quarter: 2004Q4

REPORT INFORMATION
  Report Type: 
  Country: None (occurrence: None)
  Receive Date: 20041229
  Receipt Date: 20041213
  Transmission Date: 20050328
  Serious: Yes (Hospitalization)
  Sender: FDA-Public Use
  Company Number: S04-FRA-08239-01

PATIENT
  Age: 92 Year
  Sex: Female

DRUGS (6)
  1. SEROPRAM (CITALOPRAM) [Suspect]
     Indication: DEPRESSION
     Dosage: 20 MG QD PO
     Route: 048
     Dates: start: 20041109, end: 20041113
  2. VASTAREL    BIOPHARMA (TRIMETAZIDINE HYDROCHLORIDE) [Concomitant]
  3. NIDREL (NITRENDIPINE) [Concomitant]
  4. ZOCOR [Concomitant]
  5. PLAVIX [Concomitant]
  6. TIMOLOL MALEATE [Concomitant]

REACTIONS (6)
  - BLOOD CHLORIDE DECREASED [None]
  - BLOOD POTASSIUM DECREASED [None]
  - DISORIENTATION [None]
  - FALL [None]
  - HYPONATRAEMIA [None]
  - VERTIGO [None]
